FAERS Safety Report 8067350-1 (Version None)
Quarter: 2012Q1

REPORT INFORMATION
  Report Type: 
  Country: None (occurrence: None)
  Receive Date: 20120124
  Receipt Date: 20120118
  Transmission Date: 20120608
  Serious: Yes (Other)
  Sender: FDA-Public Use
  Company Number: AU-GLAXOSMITHKLINE-B0777127A

PATIENT
  Sex: Female

DRUGS (2)
  1. XELODA [Suspect]
     Indication: BREAST CANCER
     Route: 065
     Dates: start: 20110901, end: 20120111
  2. TYKERB [Suspect]
     Indication: BREAST CANCER
     Route: 065
     Dates: start: 20110901, end: 20120111

REACTIONS (4)
  - ERYTHEMA [None]
  - PALMAR-PLANTAR ERYTHRODYSAESTHESIA SYNDROME [None]
  - CHEILITIS [None]
  - PAIN IN EXTREMITY [None]
